FAERS Safety Report 11553239 (Version 3)
Quarter: 2015Q4

REPORT INFORMATION
  Report Type: Spontaneous
  Country: NL (occurrence: NL)
  Receive Date: 20150925
  Receipt Date: 20151005
  Transmission Date: 20160304
  Serious: Yes (Life-Threatening, Hospitalization, Other)
  Sender: FDA-Public Use
  Company Number: NL-ROCHE-1638795

PATIENT
  Sex: Female

DRUGS (8)
  1. XOLAIR [Suspect]
     Active Substance: OMALIZUMAB
     Indication: URTICARIA
  2. LEVOCETIRIZINE [Concomitant]
     Active Substance: LEVOCETIRIZINE
  3. RANITIDINE [Concomitant]
     Active Substance: RANITIDINE\RANITIDINE HYDROCHLORIDE
  4. CELECOXIB. [Concomitant]
     Active Substance: CELECOXIB
  5. XOLAIR [Suspect]
     Active Substance: OMALIZUMAB
     Indication: MASTOCYTOSIS
     Dosage: FIRST WITH 30 MG TO SEE IF IT WENT WELL (WENT WELL) SO 270 MG WAS ADMINISTERED AT ONCE
     Route: 058
     Dates: start: 20150923
  6. XOLAIR [Suspect]
     Active Substance: OMALIZUMAB
     Indication: ASTHMA
  7. TRAMADOL. [Concomitant]
     Active Substance: TRAMADOL
  8. MONTELUKAST [Concomitant]
     Active Substance: MONTELUKAST SODIUM

REACTIONS (5)
  - Anaphylactic reaction [Recovered/Resolved]
  - Off label use [Unknown]
  - Asthma [Unknown]
  - Respiratory distress [Unknown]
  - Respiratory failure [Unknown]

NARRATIVE: CASE EVENT DATE: 20150923
